FAERS Safety Report 8650713 (Version 39)
Quarter: 2016Q2

REPORT INFORMATION
  Report Type: Spontaneous
  Country: US (occurrence: US)
  Receive Date: 20120705
  Receipt Date: 20160614
  Transmission Date: 20160815
  Serious: Yes (Hospitalization, Other)
  Sender: FDA-Public Use
  Company Number: US-GLAXOSMITHKLINE-A0983243A

PATIENT
  Age: 64 Year
  Sex: Female
  Weight: 51 kg

DRUGS (16)
  1. FLOLAN [Suspect]
     Active Substance: EPOPROSTENOL SODIUM
     Dosage: UNK
  2. LETAIRIS [Concomitant]
     Active Substance: AMBRISENTAN
  3. FLOLAN [Suspect]
     Active Substance: EPOPROSTENOL SODIUM
     Indication: COR PULMONALE CHRONIC
     Dosage: CONTINUOUS81 NG/KG/MIN AT 90,000 NG/ML CONCENTRATION, 1.5 MG VIAL STRENGTH90 NG/KG/MIN, 60,000 [...]
     Route: 042
     Dates: start: 20010119
  4. FLOLAN [Suspect]
     Active Substance: EPOPROSTENOL SODIUM
     Dosage: 92 NG/KG/MIN CONTINUOUS
  5. FLOLAN [Suspect]
     Active Substance: EPOPROSTENOL SODIUM
     Dosage: 89 NG/KG/MIN
  6. VELETRI [Concomitant]
     Active Substance: EPOPROSTENOL
  7. FLOLAN [Suspect]
     Active Substance: EPOPROSTENOL SODIUM
     Dosage: 92 NG/KG/MIN, CO
     Route: 042
  8. FLOLAN [Suspect]
     Active Substance: EPOPROSTENOL SODIUM
     Indication: PULMONARY HYPERTENSION
     Dosage: UNK
  9. FLOLAN [Suspect]
     Active Substance: EPOPROSTENOL SODIUM
     Dosage: 91NG/KG/MIN, CONTINUOUSLY
  10. FLOLAN [Suspect]
     Active Substance: EPOPROSTENOL SODIUM
     Dosage: 92 DF, CO
     Route: 042
  11. ADEMPAS [Concomitant]
     Active Substance: RIOCIGUAT
  12. FLOLAN [Suspect]
     Active Substance: EPOPROSTENOL SODIUM
     Dosage: UNK
  13. FLOLAN [Suspect]
     Active Substance: EPOPROSTENOL SODIUM
     Dosage: 91 NG/KG/MIN CONTINUOUS; CONCENTRATION: 60,000 NG/ML; PUMP RATE: 87 ML/DAY; VIAL STRENGTH: 1.5 MG
  14. FLOLAN [Suspect]
     Active Substance: EPOPROSTENOL SODIUM
     Dosage: 94 NG/KG/MIN (CONCENTRATION 60,000 NG/ML, PUMP RATE 90 ML/DAY, VIAL STRENGTH 1.5 MG), CO
     Route: 042
     Dates: start: 20131202
  15. FLOLAN [Suspect]
     Active Substance: EPOPROSTENOL SODIUM
     Dosage: 90NG/KG/MIN, CONTINUOUSLY
  16. FLOLAN [Suspect]
     Active Substance: EPOPROSTENOL SODIUM
     Dosage: UNK, CO

REACTIONS (37)
  - Nausea [Unknown]
  - Wound infection [Not Recovered/Not Resolved]
  - Fatigue [Unknown]
  - Diarrhoea [Unknown]
  - Iron deficiency [Unknown]
  - Dyspnoea [Recovered/Resolved]
  - Headache [Unknown]
  - Device breakage [Unknown]
  - Overgrowth bacterial [Unknown]
  - Cardiac ablation [Unknown]
  - Fall [Unknown]
  - Cardiac disorder [Unknown]
  - Weight decreased [Unknown]
  - Gastrointestinal infection [Recovered/Resolved]
  - Complication associated with device [Unknown]
  - Tooth infection [Unknown]
  - Gastric hypomotility [Unknown]
  - Medication error [Unknown]
  - Malaise [Unknown]
  - Flushing [Unknown]
  - Drug dose omission [Unknown]
  - Pulmonary arterial hypertension [Unknown]
  - Gastrointestinal bacterial infection [Unknown]
  - Device alarm issue [Unknown]
  - Rehabilitation therapy [Recovered/Resolved]
  - Wound [Not Recovered/Not Resolved]
  - Emergency care [Unknown]
  - Clostridium difficile colitis [Unknown]
  - Ventricular tachycardia [Recovered/Resolved]
  - Atrial fibrillation [Recovered/Resolved]
  - Vomiting [Unknown]
  - Gastrointestinal disorder [Recovered/Resolved]
  - Catheter site erythema [Recovered/Resolved]
  - Electrolyte imbalance [Unknown]
  - Hypotension [Recovered/Resolved]
  - Hospitalisation [Recovered/Resolved]
  - Cardioversion [Recovered/Resolved]

NARRATIVE: CASE EVENT DATE: 20120627
